FAERS Safety Report 24324855 (Version 1)
Quarter: 2024Q3

REPORT INFORMATION
  Report Type: Spontaneous
  Country: AR (occurrence: AR)
  Receive Date: 20240916
  Receipt Date: 20240916
  Transmission Date: 20241017
  Serious: Yes (Death, Other)
  Sender: BAYER
  Company Number: AR-BAYER-2024A131755

PATIENT
  Age: 71 Year
  Sex: Female

DRUGS (3)
  1. ULTRAVIST [Suspect]
     Active Substance: IOPROMIDE
     Indication: Positron emission tomogram
     Dosage: 50 ML, ONCE
     Dates: start: 20240911, end: 20240911
  2. DIPHENHYDRAMINE [Concomitant]
     Active Substance: DIPHENHYDRAMINE
     Dosage: 10 ML
  3. HYDROCORTISONE [Concomitant]
     Active Substance: HYDROCORTISONE\HYDROCORTISONE ACETATE
     Dosage: 500 MG

REACTIONS (6)
  - Laryngeal oedema [Fatal]
  - Cardio-respiratory arrest [Fatal]
  - Dystonia [None]
  - Oropharyngeal discomfort [None]
  - Physical deconditioning [None]
  - Mydriasis [None]

NARRATIVE: CASE EVENT DATE: 20240911
